FAERS Safety Report 7754081 (Version 5)
Quarter: 2013Q2

REPORT INFORMATION
  Report Type: Spontaneous
  Country: US (occurrence: US)
  Receive Date: 20110110
  Receipt Date: 20130628
  Transmission Date: 20140414
  Serious: Yes (Life-Threatening, Hospitalization)
  Sender: FDA-Public Use
  Company Number: US-B.I. PHARMACEUTICALS,INC./RIDGEFIELD-2011-BP-00353BP

PATIENT
  Age: 78 Year
  Sex: Male
  Weight: 129.27 kg

DRUGS (14)
  1. PRADAXA [Suspect]
     Indication: ATRIAL FIBRILLATION
     Dosage: 300 MG
     Route: 048
     Dates: start: 20101122, end: 20101206
  2. WARFARIN [Suspect]
     Dates: start: 20101206
  3. PRANDIN [Concomitant]
     Indication: DIABETES MELLITUS
     Route: 048
  4. JANUVIA [Concomitant]
     Indication: DIABETES MELLITUS
     Route: 048
  5. LIPITOR [Concomitant]
     Indication: BLOOD CHOLESTEROL INCREASED
     Route: 048
  6. COZAAR [Concomitant]
     Indication: HYPERTENSION
     Route: 048
  7. LOSARTAN [Concomitant]
     Indication: HYPERTENSION
     Dosage: 100 MG
  8. CHLORTHALIDONE [Concomitant]
     Dosage: 50 MG
  9. FUROSEMIDE [Concomitant]
     Dosage: 20 MG
  10. KLONIPIN [Concomitant]
     Indication: RESTLESS LEGS SYNDROME
  11. SINEMET [Concomitant]
     Indication: RESTLESS LEGS SYNDROME
  12. OMEGA 3 FATTY ACIDS [Concomitant]
  13. FERROUS SULFATE [Concomitant]
     Dosage: 325 MG
  14. VITAMIN D [Concomitant]

REACTIONS (8)
  - Haemoglobin decreased [Not Recovered/Not Resolved]
  - Haemorrhage [Unknown]
  - Heart injury [Not Recovered/Not Resolved]
  - Gastrointestinal haemorrhage [Not Recovered/Not Resolved]
  - Myocardial infarction [Unknown]
  - Respiratory failure [Unknown]
  - General physical health deterioration [Not Recovered/Not Resolved]
  - Pruritus [Unknown]
